FAERS Safety Report 10900458 (Version 1)
Quarter: 2015Q1

REPORT INFORMATION
  Report Type: Spontaneous
  Country: GB (occurrence: GB)
  Receive Date: 20150310
  Receipt Date: 20150310
  Transmission Date: 20150721
  Serious: Yes (Other)
  Sender: FDA-Public Use
  Company Number: GB-AUROBINDO-AUR-APL-2015-01879

PATIENT
  Age: 43 Year
  Sex: Male

DRUGS (2)
  1. MIRTAZAPINE. [Interacting]
     Active Substance: MIRTAZAPINE
     Indication: DEPRESSION
     Dosage: UNK
     Route: 048
  2. METRONIDAZOLE 200MG [Suspect]
     Active Substance: METRONIDAZOLE
     Indication: NECROTISING ULCERATIVE GINGIVOSTOMATITIS
     Dosage: 200 MG, UNK
     Route: 048
     Dates: start: 20150212, end: 20150212

REACTIONS (2)
  - Syncope [Recovered/Resolved]
  - Drug interaction [Unknown]

NARRATIVE: CASE EVENT DATE: 20150212
